FAERS Safety Report 8365838-7 (Version None)
Quarter: 2012Q2

REPORT INFORMATION
  Report Type: 
  Country: None (occurrence: None)
  Receive Date: 20120515
  Receipt Date: 20120502
  Transmission Date: 20120825
  Serious: Yes (Death, Hospitalization)
  Sender: FDA-Public Use
  Company Number: 2012P1020647

PATIENT
  Age: 75 Year
  Sex: Male
  Weight: 73.5 kg

DRUGS (15)
  1. PLACEBO [Suspect]
     Indication: MYELOFIBROSIS
     Dosage: 0.5 MG;QD;PO
     Route: 048
     Dates: start: 20120413, end: 20120413
  2. PLACEBO [Suspect]
     Indication: MYELOFIBROSIS
     Dosage: 0.5 MG;QD;PO
     Route: 048
     Dates: start: 20110622
  3. ACETAMINOPHEN [Concomitant]
  4. AMICAR [Suspect]
     Indication: GINGIVAL BLEEDING
     Dosage: ; PO
     Route: 048
     Dates: start: 20120412
  5. MAGIC MOUTHWASH [Concomitant]
  6. ALLOPURINOL [Concomitant]
  7. IRBESARTAN [Concomitant]
  8. MELATONIN [Concomitant]
  9. VITAMIN D [Concomitant]
  10. AMBIEN [Concomitant]
  11. GLYBURIDE [Concomitant]
  12. METFORMIN HCL [Concomitant]
  13. METAMUCIL-2 [Concomitant]
  14. MINERAL OIL [Concomitant]
  15. ASPIRIN [Concomitant]

REACTIONS (5)
  - GASTROINTESTINAL HAEMORRHAGE [None]
  - HAEMODYNAMIC INSTABILITY [None]
  - THROMBOCYTOPENIA [None]
  - CARDIAC ARREST [None]
  - CONDITION AGGRAVATED [None]
